FAERS Safety Report 17122751 (Version 3)
Quarter: 2020Q1

REPORT INFORMATION
  Report Type: Report from Study
  Country: DE (occurrence: DE)
  Receive Date: 20191206
  Receipt Date: 20200205
  Transmission Date: 20200409
  Serious: Yes (Hospitalization, Other)
  Sender: FDA-Public Use
  Company Number: DE-ACTELION-A-CH2019-193369

PATIENT
  Age: 42 Year
  Sex: Female
  Weight: 77 kg

DRUGS (38)
  1. ADEMPAS [Suspect]
     Active Substance: RIOCIGUAT
     Dosage: 6 MG, QD
     Route: 048
     Dates: start: 20191212, end: 20200109
  2. SILDENAFIL. [Concomitant]
     Active Substance: SILDENAFIL
     Indication: PULMONARY ARTERIAL HYPERTENSION
     Dosage: 60 MG, QD
     Route: 048
     Dates: start: 20190521, end: 20191115
  3. DIMENHYDRINAT [Concomitant]
     Active Substance: DIMENHYDRINATE
     Indication: VOMITING
     Dosage: UNK
     Dates: start: 20190517, end: 20190521
  4. INSULIN GLARGINE [Concomitant]
     Active Substance: INSULIN GLARGINE
     Indication: TYPE 2 DIABETES MELLITUS
     Dosage: UNK
     Route: 058
     Dates: start: 2017
  5. TREPROSTINIL. [Suspect]
     Active Substance: TREPROSTINIL
     Dosage: 24.6 NG/KG, QD
     Route: 065
     Dates: start: 20190810, end: 20190817
  6. TREPROSTINIL. [Suspect]
     Active Substance: TREPROSTINIL
     Dosage: 22.4 NG/KG, QD
     Route: 065
     Dates: start: 20190726, end: 20190803
  7. SILDENAFIL. [Concomitant]
     Active Substance: SILDENAFIL
     Dosage: 75 MG, QD
     Route: 048
     Dates: start: 20190509, end: 20190520
  8. SILDENAFIL. [Concomitant]
     Active Substance: SILDENAFIL
     Dosage: 40 MG, QD
     Route: 048
     Dates: start: 20191028, end: 20191115
  9. ENOXAPARIN [Concomitant]
     Active Substance: ENOXAPARIN
     Indication: THROMBOSIS PROPHYLAXIS
     Dosage: UNK
     Route: 058
     Dates: start: 20190711, end: 20190712
  10. DEKRISTOL [Concomitant]
     Active Substance: CHOLECALCIFEROL
     Indication: PROPHYLAXIS
     Dosage: UNK
     Route: 048
     Dates: start: 20191121
  11. CAPECITABINE. [Concomitant]
     Active Substance: CAPECITABINE
     Indication: PANCREATIC NEUROENDOCRINE TUMOUR
     Dosage: UNK
     Route: 048
     Dates: start: 20191007
  12. POTASSIUM [Concomitant]
     Active Substance: POTASSIUM
     Dosage: UNK
     Route: 048
     Dates: start: 20190515, end: 20190521
  13. TREPROSTINIL. [Suspect]
     Active Substance: TREPROSTINIL
     Dosage: 39.1 NG/KG, QD
     Route: 065
     Dates: start: 20191129, end: 20200109
  14. ENOXAPARIN [Concomitant]
     Active Substance: ENOXAPARIN
     Dosage: UNK
     Dates: start: 20190514, end: 20190520
  15. PARACETAMOL [Concomitant]
     Active Substance: ACETAMINOPHEN
     Dosage: UNK
     Route: 048
     Dates: end: 20190521
  16. OPSUMIT [Suspect]
     Active Substance: MACITENTAN
     Indication: PULMONARY ARTERIAL HYPERTENSION
     Dosage: 10 MG, QD
     Route: 048
     Dates: start: 20190510
  17. TORASEMIDE [Concomitant]
     Active Substance: TORSEMIDE
     Indication: HYPERTENSION
     Dosage: UNK
     Route: 048
  18. LANREOTIDA [Concomitant]
     Active Substance: LANREOTIDE
     Indication: PANCREATIC NEUROENDOCRINE TUMOUR
     Dosage: UNK
     Route: 048
     Dates: end: 20191011
  19. POTASSIUM CHLORIDE. [Concomitant]
     Active Substance: POTASSIUM CHLORIDE
     Dosage: UNK
     Dates: start: 20190516, end: 20190521
  20. TREPROSTINIL. [Suspect]
     Active Substance: TREPROSTINIL
     Dosage: 13.9 NG/KG, QD
     Route: 065
     Dates: start: 20190515, end: 20190711
  21. AMLODIPIN [Concomitant]
     Active Substance: AMLODIPINE BESYLATE
     Indication: HYPERTENSION
     Dosage: UNK
     Route: 048
     Dates: start: 2017
  22. CLEXANE [Concomitant]
     Active Substance: ENOXAPARIN SODIUM
     Indication: PROPHYLAXIS
     Dosage: UNK
     Route: 058
     Dates: start: 20191115, end: 20191120
  23. PANTOPRAZOLE [Concomitant]
     Active Substance: PANTOPRAZOLE
     Indication: PROPHYLAXIS
     Dosage: UNK
     Route: 048
  24. KREON [Concomitant]
     Active Substance: PANCRELIPASE
     Indication: PANCREATIC DISORDER
     Dosage: UNK
     Route: 048
  25. TREPROSTINIL. [Suspect]
     Active Substance: TREPROSTINIL
     Dosage: 23.5 NG/KG, QD
     Route: 065
     Dates: start: 20190803, end: 20190810
  26. TREPROSTINIL. [Suspect]
     Active Substance: TREPROSTINIL
     Dosage: 21.3 NG/KG, QD
     Route: 065
     Dates: start: 20190719, end: 20190726
  27. ADEMPAS [Suspect]
     Active Substance: RIOCIGUAT
     Indication: PULMONARY ARTERIAL HYPERTENSION
     Dosage: 3 MG, QD
     Route: 048
     Dates: start: 20191118, end: 20191128
  28. TEMOZOLOMIDE. [Concomitant]
     Active Substance: TEMOZOLOMIDE
     Indication: PANCREATIC NEUROENDOCRINE TUMOUR
     Dosage: UNK
     Route: 048
     Dates: start: 20191016
  29. ONDANSETRON [Concomitant]
     Active Substance: ONDANSETRON
     Dosage: UNK
     Route: 042
     Dates: start: 20190517, end: 20190521
  30. TREPROSTINIL. [Suspect]
     Active Substance: TREPROSTINIL
     Dosage: 26.7 NG/KG, QD
     Route: 065
     Dates: start: 20190824, end: 20190831
  31. TREPROSTINIL. [Suspect]
     Active Substance: TREPROSTINIL
     Dosage: 25.6 NG/KG, QD
     Route: 065
     Dates: start: 20190817, end: 20190824
  32. TREPROSTINIL. [Suspect]
     Active Substance: TREPROSTINIL
     Dosage: 20.3 NG/KG, QD
     Route: 065
     Dates: start: 20190711, end: 20190719
  33. TREPROSTINIL. [Suspect]
     Active Substance: TREPROSTINIL
     Dosage: 35 NG/KG, QD
     Route: 065
     Dates: start: 20191115, end: 20191129
  34. ADEMPAS [Suspect]
     Active Substance: RIOCIGUAT
     Dosage: 4.5 MG, QD
     Route: 048
     Dates: start: 20191128, end: 20191212
  35. ADEMPAS [Suspect]
     Active Substance: RIOCIGUAT
     Dosage: 7.5 MG, QD
     Route: 048
     Dates: start: 20200109
  36. TREPROSTINIL. [Suspect]
     Active Substance: TREPROSTINIL
     Indication: PULMONARY ARTERIAL HYPERTENSION
     Dosage: 27.8 NG/KG, QD
     Route: 065
     Dates: start: 20190831, end: 20191115
  37. TREPROSTINIL. [Suspect]
     Active Substance: TREPROSTINIL
     Dosage: 50.0 NG/KG, QD
     Route: 048
     Dates: start: 20200109
  38. SILDENAFIL. [Concomitant]
     Active Substance: SILDENAFIL
     Dosage: 60 MG, QD
     Route: 048
     Dates: start: 20190321, end: 20190509

REACTIONS (7)
  - Catheterisation cardiac [Recovered/Resolved]
  - Transplant evaluation [Unknown]
  - Magnetic resonance imaging liver abnormal [Unknown]
  - Thyroid mass [Not Recovered/Not Resolved]
  - Biopsy thyroid gland [Not Recovered/Not Resolved]
  - Bronchitis [Recovered/Resolved]
  - Tachycardia [Not Recovered/Not Resolved]

NARRATIVE: CASE EVENT DATE: 20190711
